FAERS Safety Report 21160259 (Version 1)
Quarter: 2022Q3

REPORT INFORMATION
  Report Type: Report from Study
  Country: US (occurrence: US)
  Receive Date: 20220802
  Receipt Date: 20220802
  Transmission Date: 20221026
  Serious: Yes (Other)
  Sender: FDA-Public Use
  Company Number: US-Accord-271746

PATIENT
  Age: 26 Year
  Sex: Male
  Weight: 62.7 kg

DRUGS (1)
  1. CLOZAPINE [Suspect]
     Active Substance: CLOZAPINE
     Indication: Schizophrenia
     Dosage: 300 MG AT BEDTIME (3X100 MG?TABLETS) BY MOUTH
     Dates: start: 20210825

REACTIONS (3)
  - Neutropenia [Unknown]
  - Constipation [Unknown]
  - Salivary hypersecretion [Unknown]

NARRATIVE: CASE EVENT DATE: 20220722
